FAERS Safety Report 5062784-1 (Version None)
Quarter: 2006Q3

REPORT INFORMATION
  Report Type: 
  Country: None (occurrence: None)
  Receive Date: 20060724
  Receipt Date: 20060724
  Transmission Date: 20061208
  Serious: Yes (Death, Life-Threatening, Hospitalization)
  Sender: FDA-Public Use
  Company Number: None

PATIENT
  Sex: Male

DRUGS (1)
  1. HEPARIN [Suspect]
     Indication: POSTOPERATIVE CARE
     Dosage: 60 UNITS/KG CONTINUOUS IV DRIP
     Route: 041
     Dates: start: 20060503, end: 20060504

REACTIONS (2)
  - HAEMORRHAGE [None]
  - NERVOUS SYSTEM DISORDER [None]
